FAERS Safety Report 19351579 (Version 2)
Quarter: 2021Q2

REPORT INFORMATION
  Report Type: Spontaneous
  Country: JP (occurrence: JP)
  Receive Date: 20210531
  Receipt Date: 20210601
  Transmission Date: 20210717
  Serious: Yes (Death)
  Sender: FDA-Public Use
  Company Number: JP-DSJP-DSJ-2021-116099

PATIENT
  Age: 62 Year
  Sex: Male
  Weight: 70 kg

DRUGS (22)
  1. ELIQUIS [Concomitant]
     Active Substance: APIXABAN
     Dosage: 5 MG, BID, AFTER BREAKFAST AND DINNER
     Route: 065
  2. URSODEOXYCHOLIC ACID [Concomitant]
     Active Substance: URSODIOL
     Dosage: 100 MG, TID, AFTER EACH MEAL
     Route: 065
  3. MIYA?BM [Concomitant]
     Active Substance: CLOSTRIDIUM BUTYRICUM SPORES STRAIN M-55
     Dosage: 1 G, TID, AFTER EACH MEAL
     Route: 065
  4. MECOBALAMIN [Concomitant]
     Active Substance: METHYLCOBALAMIN
     Dosage: 0.5 MG, TID, AFTER EACH MEAL
     Route: 065
  5. AMIPAREN [Concomitant]
     Active Substance: AMINO ACIDS, SOURCE UNSPECIFIED
     Dosage: 300ML/DAY
     Route: 041
  6. GLUCOSE [Concomitant]
     Active Substance: DEXTROSE
     Dosage: 200ML/DAY
     Route: 041
  7. TAKECAB [Concomitant]
     Active Substance: VONOPRAZAN FUMARATE
     Dosage: 20 MG, QD, AFTER BREAKFAST
     Route: 065
  8. SEISHOKU [Concomitant]
     Active Substance: SODIUM CHLORIDE
     Dosage: 50ML/DAY
     Route: 041
     Dates: start: 20210514, end: 20210514
  9. DEXART [Concomitant]
     Active Substance: DEXAMETHASONE SODIUM PHOSPHATE
     Dosage: 9.9MG/DAY
     Route: 041
     Dates: start: 20210514, end: 20210514
  10. SPIRONOLACTONE. [Concomitant]
     Active Substance: SPIRONOLACTONE
     Dosage: 50 MG, QD, AFTER BREAKFAST
     Route: 065
  11. HICALIQ [Concomitant]
     Active Substance: CALCIUM GLUCONATE\DEXTROSE\MAGNESIUM SULFATE\POTASSIUM ACETATE\POTASSIUM PHOSPHATE, DIBASIC\ZINC SULFATE
     Dosage: 500ML/DAY
     Route: 041
  12. MULTAMIN                           /07504101/ [Concomitant]
     Dosage: 1V/DAY
     Route: 041
  13. FOLIAMIN [Concomitant]
     Active Substance: FOLIC ACID
     Dosage: 5 MG, TID, AFTER EACH MEAL
     Route: 065
  14. SEISHOKU [Concomitant]
     Active Substance: SODIUM CHLORIDE
     Dosage: 50ML/DAY
     Route: 041
     Dates: start: 20210514, end: 20210514
  15. ALOXI [Concomitant]
     Active Substance: PALONOSETRON HYDROCHLORIDE
     Dosage: 0.75MG/5ML/DAY
     Route: 041
     Dates: start: 20210514, end: 20210514
  16. FUROSEMIDE. [Concomitant]
     Active Substance: FUROSEMIDE
     Dosage: 20 MG, QD, AFTER BREAKFAST
     Route: 065
  17. MEDLENIK [Concomitant]
     Active Substance: CUPRIC SULFATE\FERRIC CHLORIDE\MANGANESE CHLORIDE\POTASSIUM IODIDE\ZINC SULFATE
     Dosage: 2ML/DAY
     Route: 041
  18. ENHERTU [Suspect]
     Active Substance: FAM-TRASTUZUMAB DERUXTECAN-NXKI
     Indication: HER2 POSITIVE GASTRIC CANCER
     Dosage: 420 MG, ONCE EVERY 3 WK
     Route: 041
     Dates: start: 20210514, end: 20210514
  19. FERROUS CITRATE NA [Concomitant]
     Active Substance: SODIUM FERROUS CITRATE
     Dosage: 100 MG, QD, AFTER DINNER
     Route: 065
  20. NIFEDIPINE. [Concomitant]
     Active Substance: NIFEDIPINE
     Dosage: 20 MG, QD, AFTER BREAKFAST
     Route: 065
  21. CYMBALTA [Concomitant]
     Active Substance: DULOXETINE HYDROCHLORIDE
     Dosage: 20 MG, QD, AFTER BREAKFAST
     Route: 065
  22. KCL [Concomitant]
     Active Substance: POTASSIUM CHLORIDE
     Dosage: 20MEQ/DAY
     Route: 041

REACTIONS (4)
  - White blood cell count decreased [Fatal]
  - Anaemia [Fatal]
  - Disease progression [Fatal]
  - Platelet count decreased [Fatal]

NARRATIVE: CASE EVENT DATE: 20210521
